FAERS Safety Report 11696654 (Version 23)
Quarter: 2019Q4

REPORT INFORMATION
  Report Type: Spontaneous
  Country: BR (occurrence: BR)
  Receive Date: 20151104
  Receipt Date: 20191127
  Transmission Date: 20200122
  Serious: Yes (Hospitalization, Other)
  Sender: FDA-Public Use
  Company Number: BR-GLAXOSMITHKLINE-BR2015GSK033029

PATIENT
  Age: 23 Year
  Sex: Female
  Weight: 84 kg

DRUGS (6)
  1. BENLYSTA [Suspect]
     Active Substance: BELIMUMAB
     Indication: SYSTEMIC LUPUS ERYTHEMATOSUS
     Dosage: 800 MG, UNK
     Dates: start: 20141125
  2. OMEPRAZOLE. [Concomitant]
     Active Substance: OMEPRAZOLE
     Indication: PRODUCT USED FOR UNKNOWN INDICATION
     Dosage: 20 MG, UNK
  3. REUQUINOL (HYDROXYCHLOROQUINE SULFATE) [Concomitant]
     Indication: PRODUCT USED FOR UNKNOWN INDICATION
     Dosage: 400 MG, UNK
  4. METHOTREXATE. [Concomitant]
     Active Substance: METHOTREXATE
     Indication: PRODUCT USED FOR UNKNOWN INDICATION
     Dosage: 0.5 ML, WE
  5. PREDNISONE. [Concomitant]
     Active Substance: PREDNISONE
     Indication: PRODUCT USED FOR UNKNOWN INDICATION
     Dosage: 5 MG, UNK
  6. BENLYSTA [Suspect]
     Active Substance: BELIMUMAB
     Dosage: 400 MG, UNK

REACTIONS (24)
  - Pain [Not Recovered/Not Resolved]
  - Product availability issue [Recovered/Resolved]
  - Hordeolum [Unknown]
  - Eye pain [Unknown]
  - Circumstance or information capable of leading to medication error [Recovered/Resolved]
  - Product dose omission [Not Recovered/Not Resolved]
  - Live birth [Unknown]
  - Pruritus [Unknown]
  - Pneumonia [Unknown]
  - Pleural effusion [Unknown]
  - Headache [Not Recovered/Not Resolved]
  - Erythema [Unknown]
  - Weight increased [Unknown]
  - Intentional product misuse [Unknown]
  - Exposure during pregnancy [Unknown]
  - Hospitalisation [Recovered/Resolved]
  - Alopecia [Unknown]
  - Burning sensation [Unknown]
  - Underdose [Unknown]
  - Systemic lupus erythematosus [Unknown]
  - Pericardial effusion [Unknown]
  - Influenza [Not Recovered/Not Resolved]
  - Skin disorder [Unknown]
  - Inappropriate schedule of product administration [Not Recovered/Not Resolved]

NARRATIVE: CASE EVENT DATE: 20160928
